FAERS Safety Report 12469245 (Version 4)
Quarter: 2017Q1

REPORT INFORMATION
  Report Type: Report from Study
  Country: ES (occurrence: ES)
  Receive Date: 20160615
  Receipt Date: 20170228
  Transmission Date: 20170428
  Serious: Yes (Hospitalization, Disabling)
  Sender: FDA-Public Use
  Company Number: ES-JNJFOC-20160607469

PATIENT
  Age: 61 Year
  Sex: Male

DRUGS (51)
  1. PARACETAMOL [Concomitant]
     Active Substance: ACETAMINOPHEN
     Indication: PAIN
     Route: 048
     Dates: start: 20130311
  2. BROMAZEPAM [Concomitant]
     Active Substance: BROMAZEPAM
     Indication: ANXIETY
     Route: 048
     Dates: start: 1994
  3. INSULIN GLARGINE [Concomitant]
     Active Substance: INSULIN GLARGINE
     Indication: HYPERGLYCAEMIA
     Dosage: 24 (UNITS UNSPECIFIED)
     Route: 065
     Dates: start: 20150203, end: 20150701
  4. CANAGLIFLOZIN [Suspect]
     Active Substance: CANAGLIFLOZIN
     Route: 048
  5. PARACETAMOL [Concomitant]
     Active Substance: ACETAMINOPHEN
     Indication: PAIN
     Route: 048
     Dates: start: 20150606
  6. PARACETAMOL [Concomitant]
     Active Substance: ACETAMINOPHEN
     Indication: ADVERSE EVENT
     Route: 048
     Dates: start: 20150606
  7. PARACETAMOL [Concomitant]
     Active Substance: ACETAMINOPHEN
     Indication: INTERMITTENT CLAUDICATION
     Route: 048
     Dates: start: 20130311
  8. IVABRADINE [Concomitant]
     Active Substance: IVABRADINE
     Indication: CARDIAC DISORDER
     Route: 048
     Dates: start: 20110204, end: 20110307
  9. CILOSTAZOL. [Concomitant]
     Active Substance: CILOSTAZOL
     Indication: INTERMITTENT CLAUDICATION
     Route: 048
     Dates: start: 20110202
  10. ENALAPRIL [Concomitant]
     Active Substance: ENALAPRIL
     Indication: HYPERTENSION
     Route: 048
     Dates: start: 20120521, end: 20120618
  11. OMEPRAZOLE. [Concomitant]
     Active Substance: OMEPRAZOLE
     Indication: ADVERSE EVENT
     Route: 048
     Dates: start: 20130130
  12. METAMIZOLE [Concomitant]
     Active Substance: METAMIZOLE
     Indication: ADVERSE EVENT
     Route: 048
     Dates: start: 20150606
  13. INSULIN GLARGINE [Concomitant]
     Active Substance: INSULIN GLARGINE
     Indication: HYPERGLYCAEMIA
     Dosage: 26 (UNITS UNSPECIFIED)
     Route: 065
     Dates: start: 20140327, end: 20140403
  14. SIMVASTATIN. [Concomitant]
     Active Substance: SIMVASTATIN
     Indication: DYSLIPIDAEMIA
     Route: 048
     Dates: start: 2008
  15. OXYMESTERONE [Concomitant]
     Route: 047
     Dates: start: 20150815
  16. VILDAGLIPTIN [Concomitant]
     Active Substance: VILDAGLIPTIN
     Indication: HYPERGLYCAEMIA
     Route: 065
     Dates: start: 20150604
  17. PARACETAMOL [Concomitant]
     Active Substance: ACETAMINOPHEN
     Indication: PAIN
     Route: 048
     Dates: start: 2011
  18. PARACETAMOL [Concomitant]
     Active Substance: ACETAMINOPHEN
     Indication: PAIN
     Route: 048
     Dates: start: 20111213
  19. PARACETAMOL [Concomitant]
     Active Substance: ACETAMINOPHEN
     Indication: ADVERSE EVENT
     Route: 048
     Dates: start: 20110526
  20. PARACETAMOL [Concomitant]
     Active Substance: ACETAMINOPHEN
     Indication: INTERMITTENT CLAUDICATION
     Route: 048
     Dates: start: 20110526
  21. INSULIN GLARGINE [Concomitant]
     Active Substance: INSULIN GLARGINE
     Indication: HYPERGLYCAEMIA
     Dosage: 32 (UNITS UNSPECIFIED)
     Route: 065
     Dates: start: 20140319, end: 20140323
  22. INSULIN GLARGINE [Concomitant]
     Active Substance: INSULIN GLARGINE
     Indication: HYPERGLYCAEMIA
     Dosage: 26 (UNITS UNSPECIFIED)
     Route: 065
     Dates: start: 20120403, end: 20150203
  23. INSULIN GLARGINE [Concomitant]
     Active Substance: INSULIN GLARGINE
     Indication: HYPERGLYCAEMIA
     Dosage: DOSE: 30 (UNITS UNSPECIFIED).
     Route: 065
     Dates: start: 20160720, end: 20160721
  24. PARACETAMOL [Concomitant]
     Active Substance: ACETAMINOPHEN
     Indication: PAIN
     Route: 048
     Dates: start: 20110526
  25. PARACETAMOL [Concomitant]
     Active Substance: ACETAMINOPHEN
     Indication: ADVERSE EVENT
     Route: 048
     Dates: start: 20130311
  26. PARACETAMOL [Concomitant]
     Active Substance: ACETAMINOPHEN
     Indication: INTERMITTENT CLAUDICATION
     Route: 048
     Dates: start: 2011
  27. INSULIN GLARGINE [Concomitant]
     Active Substance: INSULIN GLARGINE
     Indication: HYPERGLYCAEMIA
     Dosage: 26 (UNITS UNSPECIFIED)
     Route: 065
     Dates: start: 200906, end: 20130324
  28. PARACETAMOL [Concomitant]
     Active Substance: ACETAMINOPHEN
     Indication: ADVERSE EVENT
     Route: 048
     Dates: start: 20111213
  29. PARACETAMOL [Concomitant]
     Active Substance: ACETAMINOPHEN
     Indication: INTERMITTENT CLAUDICATION
     Route: 048
     Dates: start: 20111213
  30. GERMISDIN [Concomitant]
     Indication: ADVERSE EVENT
     Route: 061
     Dates: start: 20130409
  31. CLOPIDOGREL [Concomitant]
     Active Substance: CLOPIDOGREL BISULFATE
     Route: 048
     Dates: start: 20150815, end: 20160331
  32. INSULIN GLARGINE [Concomitant]
     Active Substance: INSULIN GLARGINE
     Indication: HYPERGLYCAEMIA
     Dosage: 30 (UNITS UNSPECIFIED)
     Route: 065
     Dates: start: 20140323, end: 20140327
  33. INSULIN GLARGINE [Concomitant]
     Active Substance: INSULIN GLARGINE
     Indication: HYPERGLYCAEMIA
     Dosage: DOSE: 32 (UNITS UNSPECIFIED)
     Route: 065
     Dates: start: 20160722, end: 20160804
  34. METFORMIN [Concomitant]
     Active Substance: METFORMIN HYDROCHLORIDE
     Indication: HYPERGLYCAEMIA
     Route: 065
     Dates: start: 20150604
  35. TROXERUTINA [Concomitant]
     Active Substance: TROXERUTIN
     Indication: INTERMITTENT CLAUDICATION
     Route: 048
     Dates: start: 20110526
  36. ENALAPRIL [Concomitant]
     Active Substance: ENALAPRIL
     Indication: HYPERTENSION
     Route: 048
     Dates: start: 20120619
  37. CLAVULANIC ACID [Concomitant]
     Active Substance: CLAVULANIC ACID
     Indication: ADVERSE EVENT
     Route: 048
     Dates: start: 20130308
  38. INSULIN GLARGINE [Concomitant]
     Active Substance: INSULIN GLARGINE
     Indication: HYPERGLYCAEMIA
     Dosage: 24 (UNITS UNSPECIFIED)
     Route: 065
     Dates: start: 20151216, end: 20160718
  39. INSULIN GLARGINE [Concomitant]
     Active Substance: INSULIN GLARGINE
     Indication: HYPERGLYCAEMIA
     Dosage: 24 (UNITS UNSPECIFIED)
     Route: 065
     Dates: start: 20140102, end: 20140301
  40. INSULIN GLARGINE [Concomitant]
     Active Substance: INSULIN GLARGINE
     Indication: HYPERGLYCAEMIA
     Dosage: DOSE: 36 (UNITS UNSPECIFIED)
     Route: 065
     Dates: start: 20160805
  41. CANAGLIFLOZIN [Suspect]
     Active Substance: CANAGLIFLOZIN
     Indication: TYPE 2 DIABETES MELLITUS
     Dosage: 100 OR 300 MG
     Route: 048
     Dates: start: 20101223
  42. PARACETAMOL [Concomitant]
     Active Substance: ACETAMINOPHEN
     Indication: ADVERSE EVENT
     Route: 048
     Dates: start: 2011
  43. CARVEDILOL. [Concomitant]
     Active Substance: CARVEDILOL
     Indication: CARDIAC DISORDER
     Route: 048
     Dates: start: 20110307
  44. ENALAPRIL [Concomitant]
     Active Substance: ENALAPRIL
     Indication: HYPERTENSION
     Route: 048
     Dates: start: 201006, end: 20120520
  45. INSULIN GLARGINE [Concomitant]
     Active Substance: INSULIN GLARGINE
     Indication: HYPERGLYCAEMIA
     Dosage: 22 (UNITS UNSPECIFIED)
     Route: 065
     Dates: start: 20130325, end: 20140102
  46. INSULIN GLARGINE [Concomitant]
     Active Substance: INSULIN GLARGINE
     Indication: HYPERGLYCAEMIA
     Dosage: 30 (UNITS UNSPECIFIED)
     Route: 065
     Dates: start: 20140301, end: 20140319
  47. PARACETAMOL [Concomitant]
     Active Substance: ACETAMINOPHEN
     Indication: INTERMITTENT CLAUDICATION
     Route: 048
     Dates: start: 20150606
  48. CARVEDILOL. [Concomitant]
     Active Substance: CARVEDILOL
     Indication: CARDIAC DISORDER
     Route: 048
     Dates: start: 201006, end: 20110307
  49. IVABRADINE [Concomitant]
     Active Substance: IVABRADINE
     Indication: CARDIAC DISORDER
     Route: 048
     Dates: start: 20110307
  50. AMOXICILLIN. [Concomitant]
     Active Substance: AMOXICILLIN
     Indication: ADVERSE EVENT
     Route: 048
     Dates: start: 20130308
  51. INSULIN GLARGINE [Concomitant]
     Active Substance: INSULIN GLARGINE
     Indication: HYPERGLYCAEMIA
     Dosage: 22 (UNITS UNSPECIFIED)
     Route: 065
     Dates: start: 20150701, end: 20151215

REACTIONS (2)
  - Peripheral ischaemia [Recovered/Resolved with Sequelae]
  - Amputation [Recovered/Resolved with Sequelae]

NARRATIVE: CASE EVENT DATE: 20160331
